FAERS Safety Report 4832087-6 (Version None)
Quarter: 2005Q4

REPORT INFORMATION
  Report Type: 
  Country: None (occurrence: None)
  Receive Date: 20051116
  Receipt Date: 20051107
  Transmission Date: 20060501
  Serious: Yes (Hospitalization, Other)
  Sender: FDA-Public Use
  Company Number: CHPA2003US02319

PATIENT
  Age: 32 Year
  Sex: Female
  Weight: 58 kg

DRUGS (34)
  1. EX-LAX LAXATIVE UNKNOWN FORMULA (NCH) (UNKNOWN) UNKNOWN [Suspect]
     Indication: WEIGHT DECREASED
     Dosage: ORAL
     Route: 048
     Dates: start: 19820101
  2. DULCOLAX [Suspect]
     Dosage: ORAL
     Route: 048
     Dates: start: 19820101
  3. CLOMIPRAMINE HCL [Concomitant]
  4. VITAMIN C (ASCORBIC ACID) [Concomitant]
  5. CORRECTOL ^SCHERING-PLOUGH^ (BISACODYL) UNKNOWN [Concomitant]
     Indication: WEIGHT DECREASED
     Dates: start: 19820101
  6. H.E.B. STORE BRAND UNKNOWN (UNKNOWN) [Suspect]
     Indication: WEIGHT DECREASED
     Dosage: ORAL
     Route: 048
     Dates: start: 19820101
  7. ANAFRANIL [Suspect]
     Dosage: 75 MG, QD,; 100 MG, QD,
  8. EFFEXOR [Suspect]
  9. CONTRACEPTIVE (NON-ORAL)(CONTRACEPTIVE (NON-ORAL) [Suspect]
     Indication: CONTRACEPTION
     Dosage: PATCH
  10. TYLENOL PM (DIPHENHYDRAMINE, PARACETAMOL) [Concomitant]
  11. ONE-A-DAY (ASCORBIC ACID, CYANOCOBALAMIN, ERGOCALCIFEROL, NICOTINAMIDE [Concomitant]
  12. TRI-NORINYL (ETHINYLESTRADIOL NORETHISTERONE) [Concomitant]
  13. PAXIL [Concomitant]
  14. SELDANE-D (PSEUDOEPHEDRINE HYDROCHLORIDE, TERFENADINE) [Concomitant]
  15. AMOXIL ^SMITH KLINE^ (AMOXICILLIN TRIHYDRATE) [Concomitant]
  16. ENTEX (GUAIFENESIN, PHENYLEPHRINE HYDROCHLORIDE, PHENYLPROPANOLAMINE H [Concomitant]
  17. EES (ERYTHROMOCYIN ETHYLSUCCINATE) [Concomitant]
  18. ROBITUSSIN AC ^ROBINS^ (CODEINE PHOSPHATE, GUAIFENESIN) [Concomitant]
  19. MEDROL [Concomitant]
  20. ATARAX [Concomitant]
  21. CYCLOCORT (AMCINONIDE) [Concomitant]
  22. CLARITIN-D (LORATADINE, PSUEODEPHEDRINE  SULFATE) [Concomitant]
  23. ALBUTEROL [Concomitant]
  24. ARISTOCORT (TRIAMINCOLONE) [Concomitant]
  25. ZITHROMAX [Concomitant]
  26. BIAXIN [Concomitant]
  27. NASACORT AQ (TRIAMINCINOLONE ACETONIDE) [Concomitant]
  28. PERI-COLACE [Concomitant]
  29. METAMUCIL (GLUCOSE MONOHYDRATE, ISPAGHULA HUSK, PLANTAGO OVATA HUSK) [Concomitant]
  30. DIDREX [Concomitant]
  31. DIET FORMULATIONS FOR TREATMENT OF OBESITY (NO INGREDIENTS/SUBSTANCES) [Concomitant]
  32. PHENTERMINE [Concomitant]
  33. VITAMINS, OTHER COMBINATIONS (NO INGREDIENTS/SUBSTANCES) [Concomitant]
  34. EPHEDRA (EPHEDRA, EPHEDRA SPP.) [Concomitant]

REACTIONS (37)
  - ADNEXA UTERI PAIN [None]
  - ANORECTAL DISORDER [None]
  - BINGE EATING [None]
  - CHANGE OF BOWEL HABIT [None]
  - CONSTIPATION [None]
  - DECREASED APPETITE [None]
  - DEHYDRATION [None]
  - DRUG DEPENDENCE [None]
  - DRUG EXPOSURE DURING PREGNANCY [None]
  - DRUG EXPOSURE VIA BREAST MILK [None]
  - DRUG INEFFECTIVE [None]
  - DYSPEPSIA [None]
  - DYSTHYMIC DISORDER [None]
  - ECONOMIC PROBLEM [None]
  - FEAR OF WEIGHT GAIN [None]
  - GASTROENTERITIS [None]
  - HAEMORRHOIDS [None]
  - HYPERPHAGIA [None]
  - ILEUS PARALYTIC [None]
  - INCREASED APPETITE [None]
  - INJURY [None]
  - LAXATIVE ABUSE [None]
  - LOWER GASTROINTESTINAL HAEMORRHAGE [None]
  - MELANOSIS COLI [None]
  - MENORRHAGIA [None]
  - NAUSEA [None]
  - OBSESSIVE-COMPULSIVE DISORDER [None]
  - OLIGOHYDRAMNIOS [None]
  - OVARIAN CYST [None]
  - PELVIC PAIN [None]
  - PERINEAL PAIN [None]
  - PREGNANCY [None]
  - PREMATURE LABOUR [None]
  - PRURITUS ANI [None]
  - RECTAL HAEMORRHAGE [None]
  - WEIGHT DECREASED [None]
  - WEIGHT INCREASED [None]
